FAERS Safety Report 25855752 (Version 1)
Quarter: 2025Q3

REPORT INFORMATION
  Report Type: Spontaneous
  Country: US (occurrence: US)
  Receive Date: 20250928
  Receipt Date: 20250928
  Transmission Date: 20251020
  Serious: No
  Sender: ALEXION PHARMACEUTICALS
  Company Number: US-AstraZeneca-CH-00957817A

PATIENT
  Sex: Male

DRUGS (1)
  1. NEXIUM [Suspect]
     Active Substance: ESOMEPRAZOLE MAGNESIUM
     Route: 065

REACTIONS (6)
  - Adverse drug reaction [Unknown]
  - Abdominal pain upper [Unknown]
  - Lung disorder [Unknown]
  - Cough [Unknown]
  - Memory impairment [Unknown]
  - Confusional state [Unknown]
